FAERS Safety Report 16183089 (Version 1)
Quarter: 2019Q2

REPORT INFORMATION
  Report Type: Spontaneous
  Country: US (occurrence: US)
  Receive Date: 20190307
  Receipt Date: 20190307
  Transmission Date: 20190711
  Serious: Yes (Death)
  Sender: FDA-Public Use
  Company Number: None

PATIENT
  Age: 63 Year
  Sex: Female

DRUGS (7)
  1. EXEMESTANE. [Concomitant]
     Active Substance: EXEMESTANE
  2. VICODIN [Concomitant]
     Active Substance: ACETAMINOPHEN\HYDROCODONE BITARTRATE
  3. ASPIRIN. [Concomitant]
     Active Substance: ASPIRIN
  4. ATORVASTATIN [Concomitant]
     Active Substance: ATORVASTATIN
  5. METOPROLOL. [Concomitant]
     Active Substance: METOPROLOL
  6. VEMLIDY [Suspect]
     Active Substance: TENOFOVIR ALAFENAMIDE FUMARATE
     Indication: BREAST CANCER FEMALE
     Route: 048
     Dates: start: 20181113
  7. OLMESARTIN [Concomitant]
     Active Substance: OLMESARTAN

REACTIONS (1)
  - Death [None]

NARRATIVE: CASE EVENT DATE: 20190307
